FAERS Safety Report 12946664 (Version 2)
Quarter: 2016Q4

REPORT INFORMATION
  Report Type: Report from Study
  Country: FR (occurrence: FR)
  Receive Date: 20161116
  Receipt Date: 20161125
  Transmission Date: 20170207
  Serious: Yes (Other)
  Sender: FDA-Public Use
  Company Number: FR-ASTRAZENECA-2016SF18265

PATIENT
  Age: 26549 Day
  Sex: Female

DRUGS (6)
  1. EUROBIOL [Concomitant]
     Dates: start: 201606
  2. AVASTIN [Suspect]
     Active Substance: BEVACIZUMAB
     Indication: OVARIAN CANCER
     Route: 042
     Dates: start: 20161024, end: 20161024
  3. ORACILLINE [Concomitant]
     Active Substance: PENICILLIN V
     Indication: SPLENECTOMY
     Dates: start: 201606
  4. AZD2281 [Suspect]
     Active Substance: OLAPARIB
     Indication: OVARIAN CANCER
     Route: 048
     Dates: start: 20161025, end: 20161025
  5. INNOHEP [Concomitant]
     Active Substance: TINZAPARIN SODIUM
     Dates: start: 201606
  6. DIAMICRON [Concomitant]
     Active Substance: GLICLAZIDE
     Dates: start: 201606

REACTIONS (1)
  - Allergic oedema [Recovered/Resolved]

NARRATIVE: CASE EVENT DATE: 20161025
